FAERS Safety Report 14782338 (Version 4)
Quarter: 2019Q1

REPORT INFORMATION
  Report Type: Spontaneous
  Country: US (occurrence: US)
  Receive Date: 20180420
  Receipt Date: 20190329
  Transmission Date: 20190417
  Serious: Yes (Other)
  Sender: FDA-Public Use
  Company Number: US-PFIZER INC-2018148614

PATIENT
  Age: 64 Year
  Sex: Female
  Weight: 72.56 kg

DRUGS (5)
  1. GENOTROPIN MQ [Suspect]
     Active Substance: SOMATROPIN
     Dosage: 0.4 MG, DAILY
     Dates: start: 20180328
  2. GENOTROPIN MQ [Suspect]
     Active Substance: SOMATROPIN
     Dosage: 0.8 MG, DAILY
  3. GENOTROPIN MQ [Suspect]
     Active Substance: SOMATROPIN
     Dosage: UNK
     Dates: end: 20190318
  4. GENOTROPIN MQ [Suspect]
     Active Substance: SOMATROPIN
     Dosage: 0.4 MG, UNK (TAKING TWO 0.2MG MINIQUICKS TO MAKE UP FOR THE 0.4MG)
     Dates: start: 201802
  5. GENOTROPIN MQ [Suspect]
     Active Substance: SOMATROPIN
     Dosage: 0.2 MG, 1X/DAY
     Dates: start: 20180227

REACTIONS (7)
  - Intentional product misuse [Unknown]
  - Impaired work ability [Unknown]
  - Drug ineffective [Not Recovered/Not Resolved]
  - Pain [Unknown]
  - Somnolence [Unknown]
  - Back pain [Unknown]
  - Sleep disorder [Unknown]

NARRATIVE: CASE EVENT DATE: 20180228
